FAERS Safety Report 18794909 (Version 2)
Quarter: 2021Q1

REPORT INFORMATION
  Report Type: Spontaneous
  Country: CA (occurrence: CA)
  Receive Date: 20210127
  Receipt Date: 20210226
  Transmission Date: 20210419
  Serious: Yes (Other)
  Sender: FDA-Public Use
  Company Number: CA-PFIZER INC-2021058159

PATIENT
  Age: 45 Year
  Weight: 75 kg

DRUGS (2)
  1. SULFASALAZINE. [Suspect]
     Active Substance: SULFASALAZINE
     Indication: ANKYLOSING SPONDYLITIS
     Dosage: 1 DF
     Route: 065
  2. MELOXICAM. [Concomitant]
     Active Substance: MELOXICAM
     Dosage: 15 MG, DAILY (DAILY AS NEEDED)

REACTIONS (7)
  - Inflammatory pain [Unknown]
  - Drug hypersensitivity [Unknown]
  - Pleural disorder [Unknown]
  - Psoriasis [Unknown]
  - Uveitis [Unknown]
  - Spinal pain [Unknown]
  - Off label use [Unknown]
